FAERS Safety Report 8483933-9 (Version None)
Quarter: 2012Q3

REPORT INFORMATION
  Report Type: 
  Country: None (occurrence: None)
  Receive Date: 20120703
  Receipt Date: 20120628
  Transmission Date: 20120928
  Serious: Yes (Other)
  Sender: FDA-Public Use
  Company Number: US-PFIZER INC-2012156488

PATIENT
  Sex: Female

DRUGS (1)
  1. PHENELZINE SULFATE [Suspect]
     Indication: AGORAPHOBIA
     Dosage: UNK

REACTIONS (7)
  - DEPRESSION [None]
  - PAIN IN EXTREMITY [None]
  - GASTRIC DISORDER [None]
  - DRUG INEFFECTIVE [None]
  - WEIGHT INCREASED [None]
  - ASTHENIA [None]
  - ABDOMINAL DISCOMFORT [None]
